FAERS Safety Report 25124887 (Version 1)
Quarter: 2025Q1

REPORT INFORMATION
  Report Type: Spontaneous
  Country: CA (occurrence: CA)
  Receive Date: 20250326
  Receipt Date: 20250326
  Transmission Date: 20250408
  Serious: Yes (Disabling, Other)
  Sender: VERTEX
  Company Number: CA-VERTEX PHARMACEUTICALS-2025-004487

PATIENT
  Age: 44 Year
  Sex: Male

DRUGS (15)
  1. TRIKAFTA [Suspect]
     Active Substance: ELEXACAFTOR\IVACAFTOR\TEZACAFTOR
     Indication: Cystic fibrosis
     Route: 048
  2. ADVAIR HFA [Concomitant]
     Active Substance: FLUTICASONE PROPIONATE\SALMETEROL XINAFOATE
  3. FLUTICASONE FUROATE [Concomitant]
     Active Substance: FLUTICASONE FUROATE
  4. COLYTE [Concomitant]
     Active Substance: POLYETHYLENE GLYCOL 3350\POTASSIUM CHLORIDE\SODIUM BICARBONATE\SODIUM CHLORIDE\SODIUM SULFATE
  5. Cotazym ecs [Concomitant]
  6. Jamp bisacodyl [Concomitant]
  7. MAGNESIUM CITRATE [Concomitant]
     Active Substance: MAGNESIUM CITRATE
  8. Odan bupropion sr [Concomitant]
  9. PANTOPRAZOLE [Concomitant]
     Active Substance: PANTOPRAZOLE
  10. AZITHROMYCIN [Concomitant]
     Active Substance: AZITHROMYCIN
  11. CIPROFLOXACIN [Concomitant]
     Active Substance: CIPROFLOXACIN
  12. TOBI PODHALER [Concomitant]
     Active Substance: TOBRAMYCIN
  13. VENTOLIN HFA [Concomitant]
     Active Substance: ALBUTEROL SULFATE
  14. VITAMIN A [Concomitant]
     Active Substance: VITAMIN A
  15. TRAZODONE [Concomitant]
     Active Substance: TRAZODONE HYDROCHLORIDE

REACTIONS (5)
  - Nervousness [Unknown]
  - Anxiety [Unknown]
  - Disturbance in attention [Unknown]
  - Fatigue [Unknown]
  - Insomnia [Unknown]
